FAERS Safety Report 8185790-7 (Version None)
Quarter: 2012Q1

REPORT INFORMATION
  Report Type: 
  Country: None (occurrence: None)
  Receive Date: 20120305
  Receipt Date: 20120227
  Transmission Date: 20120608
  Serious: Yes (Death, Hospitalization)
  Sender: FDA-Public Use
  Company Number: PHEH2011US01511

PATIENT
  Age: 54 Year
  Sex: Female

DRUGS (23)
  1. OXYCODONE HCL [Concomitant]
     Dosage: 15 MG, Q4H
  2. DIAZEPAM [Concomitant]
     Dosage: 5 MG, PRN
  3. TRAZODONE HCL [Concomitant]
     Dosage: 100 MG, UNK
  4. TEMAZEPAM [Concomitant]
  5. ONDANSETRON [Concomitant]
     Indication: NAUSEA
     Dosage: 8 MG, TID
  6. CYTOMEL [Concomitant]
     Dosage: 25 UG, TID
  7. NASONEX [Concomitant]
     Dosage: 50 MG, PRN
  8. VITAMIN D [Concomitant]
     Dosage: 50000 U, QW
  9. MACRODANTIN [Concomitant]
     Dosage: 50 MG, QD
  10. NEXIUM [Concomitant]
     Dosage: 1 DF, QD
  11. MIGRANAL [Concomitant]
     Dosage: 4 MG/ML, PRN
  12. MIRALAX [Concomitant]
  13. DESYREL [Concomitant]
     Dosage: 100 MG, TWO OR FOUR TIMES A DAY
  14. STOOL SOFTENER [Concomitant]
  15. SOMA [Concomitant]
  16. ZYRTEC [Concomitant]
  17. DETROL [Concomitant]
  18. MEGESTROL ACETATE [Concomitant]
     Dosage: UNK MG, BID
  19. FOSAMAX [Concomitant]
     Dosage: 1 DF, QW
  20. GILENYA [Suspect]
     Indication: MULTIPLE SCLEROSIS
     Dosage: 0.5 MG, QD
     Route: 048
     Dates: start: 20110808, end: 20110924
  21. COUGH SYRUP [Concomitant]
  22. BENADRYL [Concomitant]
     Dosage: 125 MG, PRN
  23. ZOLOFT [Concomitant]
     Dosage: 2 DF, QD

REACTIONS (7)
  - DEATH [None]
  - BLOOD PRESSURE DECREASED [None]
  - PROGRESSIVE MULTIPLE SCLEROSIS [None]
  - URINARY INCONTINENCE [None]
  - UROSEPSIS [None]
  - PYREXIA [None]
  - DYSPNOEA [None]
